FAERS Safety Report 17939787 (Version 2)
Quarter: 2020Q3

REPORT INFORMATION
  Report Type: Other
  Country: IT (occurrence: IT)
  Receive Date: 20200625
  Receipt Date: 20200708
  Transmission Date: 20201103
  Serious: Yes (Death, Other)
  Sender: FDA-Public Use
  Company Number: IT-APPCO PHARMA LLC-2086662

PATIENT
  Age: 66 Year
  Sex: Male

DRUGS (1)
  1. SILDENAFIL. [Suspect]
     Active Substance: SILDENAFIL
     Indication: PRODUCT USED FOR UNKNOWN INDICATION
     Route: 048

REACTIONS (7)
  - Cardiac tamponade [Fatal]
  - Pericardial haemorrhage [Fatal]
  - Circulatory collapse [Fatal]
  - Pulmonary oedema [Fatal]
  - Drug abuse [Fatal]
  - Left ventricular hypertrophy [Fatal]
  - Aortic dissection [Fatal]
